FAERS Safety Report 22391038 (Version 1)
Quarter: 2023Q2

REPORT INFORMATION
  Report Type: Spontaneous
  Country: US (occurrence: US)
  Receive Date: 20230601
  Receipt Date: 20230601
  Transmission Date: 20230722
  Serious: No
  Sender: FDA-Public Use
  Company Number: US-AMGEN-USASP2023093697

PATIENT
  Age: 69 Year
  Sex: Female

DRUGS (3)
  1. REPATHA [Suspect]
     Active Substance: EVOLOCUMAB
     Indication: Blood cholesterol increased
     Dosage: 140 MILLIGRAM, EVERY 2 WEEKS
     Route: 065
  2. REPATHA [Suspect]
     Active Substance: EVOLOCUMAB
     Dosage: 140 MILLIGRAM, EVERY 2 WEEKS
     Route: 065
  3. METHOTREXATE [Concomitant]
     Active Substance: METHOTREXATE

REACTIONS (8)
  - Tachycardia [Unknown]
  - Anxiety [Unknown]
  - Pollakiuria [Unknown]
  - Back pain [Unknown]
  - Product storage error [Unknown]
  - Palpitations [Unknown]
  - Circumstance or information capable of leading to medication error [Unknown]
  - Administration site pain [Unknown]

NARRATIVE: CASE EVENT DATE: 20230527
